FAERS Safety Report 6301516-3 (Version None)
Quarter: 2009Q3

REPORT INFORMATION
  Report Type: 
  Country: None (occurrence: None)
  Receive Date: 20090807
  Receipt Date: 20090731
  Transmission Date: 20100115
  Serious: Yes (Hospitalization)
  Sender: FDA-Public Use
  Company Number: B0586714A

PATIENT
  Sex: Male

DRUGS (4)
  1. TELZIR [Suspect]
     Indication: HIV INFECTION
     Dosage: 700MG TWICE PER DAY
     Route: 048
     Dates: start: 20080101
  2. VELBE [Suspect]
     Indication: HODGKIN'S DISEASE
     Dosage: 11.5MG CYCLIC
     Route: 042
     Dates: start: 20090603, end: 20090622
  3. NORVIR [Suspect]
     Indication: HIV INFECTION
     Dosage: 100MG TWICE PER DAY
     Route: 048
     Dates: start: 20080101
  4. TRUVADA [Concomitant]

REACTIONS (6)
  - ATAXIA [None]
  - CEREBELLAR SYNDROME [None]
  - DRUG INTERACTION [None]
  - DYSARTHRIA [None]
  - NYSTAGMUS [None]
  - VERTIGO [None]
